FAERS Safety Report 9095111 (Version 2)
Quarter: 2013Q1

REPORT INFORMATION
  Report Type: Spontaneous
  Country: TW (occurrence: TW)
  Receive Date: 20130220
  Receipt Date: 20130225
  Transmission Date: 20140127
  Serious: Yes (Death, Hospitalization)
  Sender: FDA-Public Use
  Company Number: PHHY2013TW016126

PATIENT
  Sex: 0

DRUGS (2)
  1. MYFORTIC [Suspect]
     Dosage: 08 TABLETS FOR SEVEN DAYS
     Dates: start: 20110804, end: 20110811
  2. CICLOSPORIN [Suspect]
     Dosage: FOUR CAPSULES FOR SEVEN DAY
     Dates: start: 20110804, end: 20110811

REACTIONS (1)
  - Pneumonia [Fatal]
